FAERS Safety Report 24085964 (Version 1)
Quarter: 2024Q3

REPORT INFORMATION
  Report Type: Spontaneous
  Country: GR (occurrence: GR)
  Receive Date: 20240712
  Receipt Date: 20240712
  Transmission Date: 20241017
  Serious: Yes (Other)
  Sender: PFIZER
  Company Number: GR-SEATTLE GENETICS-2023SGN12423

PATIENT
  Age: 67 Year
  Sex: Female

DRUGS (5)
  1. TUKYSA [Suspect]
     Active Substance: TUCATINIB
     Indication: HER2 positive breast cancer
     Dosage: 300 MG, BID
     Route: 048
     Dates: start: 20220128
  2. TUKYSA [Suspect]
     Active Substance: TUCATINIB
     Dosage: 250 MG, BID
     Route: 048
  3. TRASTUZUMAB [Suspect]
     Active Substance: TRASTUZUMAB
     Indication: HER2 positive breast cancer
     Route: 065
  4. CAPECITABINE [Suspect]
     Active Substance: CAPECITABINE
     Indication: HER2 positive breast cancer
     Dosage: 1000 MG/M2, BID
     Route: 065
     Dates: start: 20220128
  5. CAPECITABINE [Suspect]
     Active Substance: CAPECITABINE
     Dosage: 750 MG/M2, BID
     Route: 065

REACTIONS (8)
  - Neutropenia [Recovered/Resolved]
  - Neutropenia [Unknown]
  - Fatigue [Recovered/Resolved]
  - Anaemia [Recovered/Resolved]
  - Rash [Recovered/Resolved]
  - Nausea [Recovered/Resolved]
  - Diarrhoea [Recovered/Resolved]
  - Diarrhoea [Unknown]

NARRATIVE: CASE EVENT DATE: 20231001
